FAERS Safety Report 9394954 (Version 1)
Quarter: 2013Q3

REPORT INFORMATION
  Report Type: Spontaneous
  Country: US (occurrence: US)
  Receive Date: 20130711
  Receipt Date: 20130711
  Transmission Date: 20140515
  Serious: Yes (Death)
  Sender: FDA-Public Use
  Company Number: US-COVIDIEN/TYCO HEALTHCARE/MALLINCKRODT-T201300012

PATIENT
  Sex: Male

DRUGS (4)
  1. ROXICODONE [Suspect]
     Indication: BREAKTHROUGH PAIN
     Dosage: 1  TAB, Q6H, PRN
     Route: 048
  2. FENTANYL [Suspect]
     Indication: PAIN
     Dosage: 25MCG, Q72H
     Route: 062
     Dates: start: 20121129
  3. NEFAZODONE [Suspect]
     Indication: POST-TRAUMATIC STRESS DISORDER
     Dosage: 3 1/2 TABLETS, QHS
     Route: 048
  4. ATIVAN [Suspect]
     Indication: POST-TRAUMATIC STRESS DISORDER
     Dosage: 0.5 MG TAB, QD
     Route: 048
     Dates: start: 201112, end: 20121213

REACTIONS (2)
  - Hypersomnia [Not Recovered/Not Resolved]
  - Drug interaction [Not Recovered/Not Resolved]
